FAERS Safety Report 13454955 (Version 2)
Quarter: 2020Q3

REPORT INFORMATION
  Report Type: Report from Study
  Country: JP (occurrence: JP)
  Receive Date: 20170418
  Receipt Date: 20170426
  Transmission Date: 20201104
  Serious: Yes (Hospitalization, Other)
  Sender: FDA-Public Use
  Company Number: JP-PFIZER INC-2017163547

PATIENT
  Age: 83 Year
  Sex: Female

DRUGS (30)
  1. MEDI4736 [Suspect]
     Active Substance: DURVALUMAB
     Dosage: 1.5 G, CYCLIC EVERY 4 WEEKS
     Route: 042
     Dates: start: 20161213, end: 20161213
  2. MEDI4736 [Suspect]
     Active Substance: DURVALUMAB
     Dosage: UNK
     Route: 042
     Dates: end: 20170212
  3. BETAMETHASONE BUTYRATE PROPIONATE [Concomitant]
     Active Substance: BETAMETHASONE BUTYRATE PROPIONATE
     Indication: DERMATITIS CONTACT
     Dosage: UNK UNK, 2X/DAY
     Route: 003
     Dates: start: 20160911
  4. CELECOXIB. [Concomitant]
     Active Substance: CELECOXIB
     Indication: BACK PAIN
     Dosage: 100 MG, 2X/DAY
     Route: 048
     Dates: start: 20170308
  5. SENNOSIDE A+B CALCIUM [Concomitant]
     Active Substance: SENNOSIDES A AND B
     Indication: CONSTIPATION
     Dosage: 12.0MG AS REQUIRED
     Route: 048
     Dates: start: 20161015
  6. TREMELIMUMAB. [Suspect]
     Active Substance: TREMELIMUMAB
     Dosage: 75 MG, CYCLIC EVERY 4 WEEKS
     Route: 042
     Dates: start: 20161213, end: 20161213
  7. TREMELIMUMAB. [Suspect]
     Active Substance: TREMELIMUMAB
     Dosage: UNK
     Route: 042
     Dates: end: 20170212
  8. MEDI4736 [Suspect]
     Active Substance: DURVALUMAB
     Dosage: 1.5 G, CYCLIC EVERY 4 WEEKS
     Route: 042
     Dates: start: 20170110, end: 20170110
  9. MIYA?BM [Concomitant]
     Active Substance: CLOSTRIDIUM BUTYRICUM SPORES STRAIN M-55
     Indication: COLITIS ISCHAEMIC
     Dosage: 2 DF, 3X/DAY
     Route: 048
     Dates: start: 20170212
  10. HEPARINOID [Concomitant]
     Active Substance: CHONDROITIN SULFATE (BOVINE)
     Indication: PRURITUS
     Dosage: UNK UNK, 2X/DAY
     Route: 003
     Dates: start: 20161113
  11. VITAMEDIN /00176001/ [Concomitant]
     Indication: VITAMIN SUPPLEMENTATION
     Dosage: UNK UNK, 1X/DAY
     Route: 042
     Dates: start: 20170329
  12. CISPLATIN. [Suspect]
     Active Substance: CISPLATIN
     Dosage: UNK
     Route: 065
  13. GEMCITABINE PFIZER [Suspect]
     Active Substance: GEMCITABINE HYDROCHLORIDE
     Dosage: UNK
     Route: 065
  14. AMLODIPINE BESILATE [Concomitant]
     Active Substance: AMLODIPINE BESYLATE
     Indication: HYPERTENSION
     Dosage: 2.5 MG, 1X/DAY
     Route: 048
  15. LAC?B GRANULAR POWDER N [Concomitant]
     Indication: DIARRHOEA
     Dosage: 1 G, 3X/DAY
     Route: 048
     Dates: start: 20161116
  16. LOPERAMIDE HYDROCHLORIDE. [Concomitant]
     Active Substance: LOPERAMIDE HYDROCHLORIDE
     Indication: DIARRHOEA
     Dosage: 1.0MG AS REQUIRED
     Route: 048
     Dates: start: 20161122
  17. PREDNISONE. [Concomitant]
     Active Substance: PREDNISONE
     Indication: COLITIS
     Dosage: 15 MG, 2X/DAY
     Route: 048
     Dates: start: 20170307
  18. TRAMCET [Concomitant]
     Active Substance: ACETAMINOPHEN\TRAMADOL
     Indication: BACK PAIN
     Dosage: 1 DF, 2X/DAY
     Route: 048
     Dates: start: 20170308
  19. MEDI4736 [Suspect]
     Active Substance: DURVALUMAB
     Dosage: UNK
     Route: 042
     Dates: end: 20170212
  20. ROSUVASTATIN CALCIUM. [Concomitant]
     Active Substance: ROSUVASTATIN CALCIUM
     Indication: HYPERLIPIDAEMIA
     Dosage: 2.5 MG, 1X/DAY
     Route: 048
  21. SODIUM PICOSULFATE [Concomitant]
     Active Substance: SODIUM PICOSULFATE
     Indication: CONSTIPATION
     Dosage: AS REQUIRED
     Route: 048
     Dates: start: 20161021
  22. TREMELIMUMAB. [Suspect]
     Active Substance: TREMELIMUMAB
     Indication: BLADDER TRANSITIONAL CELL CARCINOMA
     Dosage: 75 MG, CYCLIC EVERY 4 WEEKS
     Route: 042
     Dates: start: 20161017, end: 20161017
  23. TREMELIMUMAB. [Suspect]
     Active Substance: TREMELIMUMAB
     Dosage: 75 MG, CYCLIC EVERY 4 WEEKS
     Route: 042
     Dates: start: 20170110, end: 20170110
  24. MEDI4736 [Suspect]
     Active Substance: DURVALUMAB
     Indication: BLADDER TRANSITIONAL CELL CARCINOMA
     Dosage: 1.5 G, CYCLIC EVERY 4 WEEKS
     Route: 042
     Dates: start: 20161017, end: 20161017
  25. TWINPAL [Concomitant]
     Active Substance: AMINO ACIDS\CARBOHYDRATES\ELECTROLYTES NOS\VITAMINS
     Indication: FLUID REPLACEMENT
     Dosage: 500 ML, 1X/DAY
     Route: 042
     Dates: start: 20170329
  26. MS REISHIPPU [Concomitant]
     Active Substance: CAMPHOR\MENTHOL\METHYL SALICYLATE
     Indication: BACK PAIN
     Dosage: UNK UNK, 1X/DAY
     Route: 062
     Dates: start: 20160929
  27. TREMELIMUMAB. [Suspect]
     Active Substance: TREMELIMUMAB
     Dosage: 75 MG, CYCLIC EVERY 4 WEEKS
     Route: 042
     Dates: start: 20161114, end: 20161114
  28. MEDI4736 [Suspect]
     Active Substance: DURVALUMAB
     Dosage: 1.5 G, CYCLIC EVERY 4 WEEKS
     Route: 042
     Dates: start: 20161114, end: 20161114
  29. DIFLUPREDNATE [Concomitant]
     Active Substance: DIFLUPREDNATE
     Indication: DERMATITIS CONTACT
     Dosage: UNK UNK, 2X/DAY
     Route: 003
     Dates: start: 20161018
  30. VEEN D [Concomitant]
     Active Substance: CALCIUM CHLORIDE\DEXTROSE\POTASSIUM CHLORIDE\SODIUM ACETATE\SODIUM CHLORIDE
     Indication: FLUID REPLACEMENT
     Dosage: 500 ML, 1X/DAY
     Route: 042
     Dates: start: 20170329

REACTIONS (1)
  - Pancytopenia [Recovering/Resolving]

NARRATIVE: CASE EVENT DATE: 20170330
